FAERS Safety Report 17024065 (Version 2)
Quarter: 2020Q1

REPORT INFORMATION
  Report Type: Report from Study
  Country: FR (occurrence: FR)
  Receive Date: 20191113
  Receipt Date: 20200112
  Transmission Date: 20200409
  Serious: Yes (Hospitalization)
  Sender: FDA-Public Use
  Company Number: FR-BRISTOL-MYERS SQUIBB COMPANY-BMS-2019-107054

PATIENT
  Age: 64 Year
  Sex: Male
  Weight: 51 kg

DRUGS (3)
  1. NIVOLUMAB [Suspect]
     Active Substance: NIVOLUMAB
     Indication: METASTATIC RENAL CELL CARCINOMA
     Dosage: 154 MILLIGRAM
     Route: 042
     Dates: start: 20160617
  2. ALPRAZOLAN [Concomitant]
     Active Substance: ALPRAZOLAM
     Indication: ANXIETY
     Dosage: 0.5 MILLIGRAM
     Route: 048
  3. LYRICA [Concomitant]
     Active Substance: PREGABALIN
     Indication: PAIN
     Dosage: 150 MILLIGRAM
     Route: 048

REACTIONS (1)
  - Inner ear disorder [Recovered/Resolved with Sequelae]

NARRATIVE: CASE EVENT DATE: 20191103
